FAERS Safety Report 18429099 (Version 1)
Quarter: 2020Q4

REPORT INFORMATION
  Report Type: Spontaneous
  Country: US (occurrence: US)
  Receive Date: 20201026
  Receipt Date: 20201026
  Transmission Date: 20210114
  Serious: Yes (Life-Threatening, Other)
  Sender: FDA-Public Use
  Company Number: US-PURDUE-USA-2020-0170902

PATIENT
  Sex: Female

DRUGS (3)
  1. OXYCONTIN [Suspect]
     Active Substance: OXYCODONE HYDROCHLORIDE
     Indication: PRODUCT USED FOR UNKNOWN INDICATION
     Dosage: 10 MG, BID
     Route: 048
  2. OXYCODONE/ ACETAMINOPHEN TABLETS [Suspect]
     Active Substance: ACETAMINOPHEN\OXYCODONE HYDROCHLORIDE
     Indication: PRODUCT USED FOR UNKNOWN INDICATION
     Dosage: UNKNOWN
     Route: 048
  3. OXYCONTIN [Suspect]
     Active Substance: OXYCODONE HYDROCHLORIDE
     Dosage: 20 MG, HS
     Route: 048

REACTIONS (37)
  - Syncope [Unknown]
  - Memory impairment [Unknown]
  - Abdominal pain upper [Unknown]
  - Crying [Unknown]
  - Drug dependence [Unknown]
  - Depression [Unknown]
  - Nausea [Unknown]
  - Vision blurred [Unknown]
  - Chest pain [Unknown]
  - Respiratory rate decreased [Unknown]
  - Drug withdrawal syndrome [Unknown]
  - Drug abuse [Unknown]
  - Sleep apnoea syndrome [Unknown]
  - Hypersensitivity [Unknown]
  - Muscle spasms [Unknown]
  - Constipation [Unknown]
  - Disturbance in attention [Unknown]
  - Libido decreased [Unknown]
  - Menstrual disorder [Unknown]
  - Dizziness [Unknown]
  - Urticaria [Unknown]
  - Dyspepsia [Unknown]
  - Confusional state [Unknown]
  - Chest discomfort [Unknown]
  - Irritability [Unknown]
  - Decreased appetite [Unknown]
  - Asthma [Unknown]
  - Insomnia [Unknown]
  - Somnolence [Unknown]
  - Vomiting [Unknown]
  - Anxiety [Unknown]
  - Gastric disorder [Unknown]
  - Pruritus [Unknown]
  - Heart rate decreased [Unknown]
  - Rash [Unknown]
  - Headache [Unknown]
  - Fatigue [Unknown]
